FAERS Safety Report 25802575 (Version 2)
Quarter: 2025Q4

REPORT INFORMATION
  Report Type: Report from Study
  Country: TW (occurrence: TW)
  Receive Date: 20250915
  Receipt Date: 20251231
  Transmission Date: 20260118
  Serious: Yes (Other)
  Sender: ROCHE
  Company Number: TW-ROCHE-10000383217

PATIENT
  Age: 71 Year
  Sex: Female

DRUGS (2)
  1. VABYSMO [Suspect]
     Active Substance: FARICIMAB-SVOA
     Indication: Neovascular age-related macular degeneration
     Dosage: TOTAL 11 INJECTIONS. 6-8 WEEKS PER INJECTION
     Dates: start: 202305, end: 202410
  2. EYLEA [Concomitant]
     Active Substance: AFLIBERCEPT

REACTIONS (4)
  - Subretinal fluid [Not Recovered/Not Resolved]
  - Drug effect less than expected [Unknown]
  - Injection site pain [Unknown]
  - Drug ineffective [Unknown]

NARRATIVE: CASE EVENT DATE: 20241001
